FAERS Safety Report 9893091 (Version 2)
Quarter: 2014Q1

REPORT INFORMATION
  Report Type: Report from Study
  Country: CA (occurrence: CA)
  Receive Date: 20140213
  Receipt Date: 20140328
  Transmission Date: 20141002
  Serious: Yes (Hospitalization)
  Sender: FDA-Public Use
  Company Number: CA-BRISTOL-MYERS SQUIBB COMPANY-20215000

PATIENT
  Age: 43 Year
  Sex: Male
  Weight: 115 kg

DRUGS (13)
  1. ARIPIPRAZOLE [Suspect]
     Indication: SCHIZOPHRENIA
     Dosage: TABS?15MG-10JAN14?10MG-17JAN14?LAST DOSE:30-JAN-2014
     Route: 048
     Dates: start: 20131219, end: 20140207
  2. ARIPIPRAZOLE IM DEPOT [Suspect]
     Indication: SCHIZOPHRENIA
     Dosage: LAST DATE:30JAN2014
     Route: 030
     Dates: start: 20140116, end: 20140207
  3. RISPERDAL [Concomitant]
     Indication: SCHIZOPHRENIA
     Dates: start: 20130411, end: 20131201
  4. COGENTIN [Concomitant]
     Indication: EXTRAPYRAMIDAL DISORDER
     Route: 048
     Dates: start: 2010, end: 20131211
  5. CIPRALEX [Concomitant]
     Indication: DEPRESSION
     Route: 048
     Dates: start: 20130704, end: 20131211
  6. CLONAZEPAM [Concomitant]
     Indication: ANXIETY
     Dosage: 1MG-11APR12?0.75MG-11DEC12-3/1D
     Route: 048
     Dates: start: 20130411, end: 20131211
  7. LORAZEPAM [Concomitant]
     Indication: ANXIETY
     Dates: start: 2010
  8. ATORVASTATIN [Concomitant]
     Indication: BLOOD CHOLESTEROL INCREASED
     Dosage: CAPSULE
     Dates: start: 2010
  9. FOLIC ACID [Concomitant]
     Indication: VITAMIN SUPPLEMENTATION
     Dosage: CAPSULE
     Dates: start: 20130911
  10. VITAMIN B COMPLEX [Concomitant]
     Indication: VITAMIN SUPPLEMENTATION
     Dosage: TABLET
     Dates: start: 20130911
  11. SPIRIVA [Concomitant]
     Dosage: INHALATION VAPOUR
     Dates: start: 20130911
  12. VITAMIN D [Concomitant]
     Indication: VITAMIN SUPPLEMENTATION
     Dosage: TABLET
     Dates: start: 20130911
  13. SPIRIVA [Concomitant]
     Indication: BRONCHITIS
     Dates: start: 20130911

REACTIONS (1)
  - Psychotic disorder [Recovered/Resolved]
